FAERS Safety Report 5051176-7 (Version None)
Quarter: 2006Q3

REPORT INFORMATION
  Report Type: 
  Country: None (occurrence: None)
  Receive Date: 20060714
  Receipt Date: 20060630
  Transmission Date: 20061208
  Serious: Yes (Other)
  Sender: FDA-Public Use
  Company Number: GBWYE928030JUN06

PATIENT
  Sex: Male
  Weight: 88 kg

DRUGS (6)
  1. ENBREL [Suspect]
     Indication: RHEUMATOID ARTHRITIS
     Route: 058
     Dates: start: 20040818
  2. QUININE SULFATE [Concomitant]
     Dosage: UNKNOWN
  3. FOLIC ACID [Concomitant]
     Dosage: UNKNOWN
  4. INDOMETHACIN [Concomitant]
     Dosage: UNKNOWN
  5. ATENOLOL [Concomitant]
     Dosage: UNKNOWN
  6. DIHYDROCODEINE [Concomitant]
     Dosage: UNKNOWN

REACTIONS (3)
  - INFECTION [None]
  - LOCALISED INFECTION [None]
  - NODULE [None]
